FAERS Safety Report 7953784-X (Version None)
Quarter: 2011Q4

REPORT INFORMATION
  Report Type: 
  Country: None (occurrence: None)
  Receive Date: 20111202
  Receipt Date: 20111125
  Transmission Date: 20120403
  Serious: Yes (Hospitalization)
  Sender: FDA-Public Use
  Company Number: AT-B.I. PHARMACEUTICALS,INC./RIDGEFIELD-2010-AP-00222AP

PATIENT
  Sex: Female
  Weight: 80 kg

DRUGS (72)
  1. PRADAXA [Suspect]
     Dosage: 75 MG
     Route: 048
     Dates: start: 20100126, end: 20100126
  2. MEXALEN [Concomitant]
     Indication: PAIN
     Dosage: 1500 MG
     Route: 048
     Dates: start: 20100201, end: 20100202
  3. MEXALEN [Concomitant]
     Dosage: 1500 MG
     Route: 048
     Dates: start: 20100204, end: 20100209
  4. NOVALGIN [Concomitant]
     Dosage: 20 GGT
     Route: 048
     Dates: start: 20100131, end: 20100202
  5. ROCURONIUM BROMIDE [Concomitant]
     Indication: ANAESTHESIA
     Dosage: 30 MG
     Route: 042
     Dates: start: 20100126, end: 20100126
  6. PASSEDAN [Concomitant]
     Indication: PROPHYLAXIS
     Dosage: 20 GTT
     Route: 048
     Dates: start: 20100131, end: 20100208
  7. T-ASS [Concomitant]
     Indication: THROMBOSIS PROPHYLAXIS
     Dosage: 100 MG
     Route: 048
     Dates: start: 20100323, end: 20100329
  8. T-ASS [Concomitant]
     Dosage: 100 MG
     Route: 048
     Dates: start: 20100409, end: 20100413
  9. SCOPOLAMINE [Concomitant]
     Dosage: 1 ANZ
     Route: 048
     Dates: start: 20100423, end: 20100424
  10. TRAMADOL HYDROCHLORIDE [Concomitant]
     Dosage: 20 DROPS
     Route: 048
     Dates: start: 20100205, end: 20100207
  11. FUROSEMIDE [Concomitant]
     Indication: HYPERTENSION
     Dosage: 40 MG
     Route: 048
     Dates: end: 20100301
  12. NOVALGIN [Concomitant]
     Indication: PAIN PROPHYLAXIS
     Dosage: 3000 MG
     Route: 048
     Dates: start: 20100128, end: 20100301
  13. NAROPIIN [Concomitant]
     Indication: ANAESTHESIA
     Dosage: 7.5 MG
     Route: 042
     Dates: start: 20100126, end: 20100126
  14. NITRAZEPAM [Concomitant]
     Indication: PROPHYLAXIS
     Dosage: 1 ANZ
     Route: 048
     Dates: start: 20100131, end: 20100131
  15. DESLORATADINE [Concomitant]
     Indication: HYPERSENSITIVITY
     Dosage: 10 MG
     Route: 048
     Dates: start: 20100322, end: 20100326
  16. SIMVASTATIN [Concomitant]
     Indication: HYPERLIPIDAEMIA
     Dosage: 20 MG
     Route: 048
     Dates: start: 20100322, end: 20100326
  17. TRAMADOL HYDROCHLORIDE [Concomitant]
     Indication: PAIN PROPHYLAXIS
     Dosage: 200 MG
     Route: 048
     Dates: end: 20100301
  18. TRAMADOL HYDROCHLORIDE [Concomitant]
     Dosage: 20 DROPS
     Route: 048
     Dates: start: 20100131, end: 20100202
  19. MODURETIC 5-50 [Concomitant]
     Indication: HYPERTENSION
     Dosage: 1 ANZ
     Route: 048
     Dates: end: 20100301
  20. PANCHOL [Concomitant]
     Indication: HYPERLIPIDAEMIA
     Dosage: 20 MG
     Route: 048
     Dates: end: 20100301
  21. NOVALGIN [Concomitant]
     Dosage: 2.5 MG
     Route: 048
     Dates: start: 20100426, end: 20100426
  22. ELOMEL [Concomitant]
     Indication: INFUSION
     Dosage: 1500 ML
     Route: 042
     Dates: start: 20100126, end: 20100126
  23. METOCLOPRAMIDE HYDROCHLORIDE [Concomitant]
     Indication: NAUSEA
     Dosage: 1 AMPOULE
     Route: 042
     Dates: start: 20100426, end: 20100426
  24. LASIX [Concomitant]
     Indication: DIURETIC THERAPY
     Dosage: INFUSION; 40 MG
     Route: 042
     Dates: start: 20100323, end: 20100329
  25. URSO FALK [Concomitant]
     Indication: ABDOMINAL PAIN UPPER
     Dosage: 3 ANZ
     Route: 048
     Dates: start: 20100405, end: 20100405
  26. PRADAXA [Suspect]
     Indication: THROMBOSIS PROPHYLAXIS
     Dosage: 150 MG
     Route: 048
     Dates: start: 20100123, end: 20100124
  27. AMARYL [Concomitant]
     Indication: DIABETES MELLITUS
     Dosage: 6 MG
     Route: 048
     Dates: start: 20100126, end: 20100301
  28. BERODUAL [Concomitant]
     Indication: DYSPNOEA
     Dosage: AS NEEDED
     Route: 055
     Dates: start: 20100111
  29. SPASMOURGENIN [Concomitant]
     Indication: RECTAL TENESMUS
     Dosage: 3 ANZ
     Route: 048
     Dates: start: 20100202, end: 20100301
  30. ELOZELL SPEZIAL [Concomitant]
     Indication: INFUSION
     Dosage: 250 ML
     Route: 042
     Dates: start: 20100126, end: 20100126
  31. ATROPINE [Concomitant]
     Indication: PROPHYLAXIS
     Dosage: 0.5 MG
     Route: 042
     Dates: start: 20100126, end: 20100126
  32. FENTANYL [Concomitant]
     Indication: ANAESTHESIA
     Dosage: 0.65 MG
     Route: 042
     Dates: start: 20100126, end: 20100126
  33. PASSEDAN [Concomitant]
     Dosage: 20 DROPS
     Route: 048
     Dates: start: 20100204, end: 20100208
  34. EBRANTIL [Concomitant]
     Indication: HYPERTENSION
     Dosage: 50 MG
     Route: 048
     Dates: start: 20100402, end: 20100402
  35. TAZONAM [Concomitant]
     Indication: INFECTION PROPHYLAXIS
     Dosage: 13.5 MG
     Route: 042
     Dates: start: 20100411, end: 20100504
  36. METFORMIN HCL [Concomitant]
     Indication: DIABETES MELLITUS
     Dosage: 1 G
     Route: 048
     Dates: start: 20100403, end: 20100405
  37. TRAMADOL HYDROCHLORIDE [Concomitant]
     Indication: PAIN
     Dosage: 600 MG
     Route: 042
     Dates: start: 20100126, end: 20100129
  38. NOVALGIN [Concomitant]
     Dosage: 20 DROPS
     Route: 048
     Dates: start: 20100205, end: 20100207
  39. MIDAZOLAM HCL [Concomitant]
     Indication: ANAESTHESIA
     Dosage: 1 MG
     Route: 042
     Dates: start: 20100126, end: 20100126
  40. COLDARGAN [Concomitant]
     Indication: DYSPNOEA
     Dosage: ON DEMAND
     Route: 055
     Dates: start: 20100128, end: 20100128
  41. ACTRAPID [Concomitant]
     Indication: DIABETES MELLITUS
     Dosage: 6 IE
     Route: 058
     Dates: start: 20100207, end: 20100207
  42. DANCOR [Concomitant]
     Indication: HYPERTENSION
     Dosage: 20 MG
     Route: 048
     Dates: start: 20100326
  43. POTASSIUM CHLORIDE [Concomitant]
     Indication: SUPPLEMENTATION THERAPY
     Dosage: 1200 NR
     Route: 048
     Dates: start: 20100427, end: 20100503
  44. PANTOPRAZOLE SODIUM [Concomitant]
     Indication: PROPHYLAXIS AGAINST GASTROINTESTINAL ULCER
     Dosage: 40 MG
     Route: 048
  45. MICARDIS HCT [Concomitant]
     Indication: HYPERTENSION
     Dosage: 80/25MG
     Route: 048
  46. NOVALGIN [Concomitant]
     Dosage: 1 G
     Route: 048
     Dates: start: 20100423, end: 20100424
  47. PASSEDAN [Concomitant]
     Dosage: 15 GTT
     Route: 048
     Dates: start: 20100412, end: 20100412
  48. JANUMET [Suspect]
     Indication: DIABETES MELLITUS
     Dosage: 150/2000 MG
     Route: 048
     Dates: end: 20100301
  49. KEFZOL [Concomitant]
     Indication: INFECTION PROPHYLAXIS
     Dosage: 6 G
     Route: 042
     Dates: start: 20100126, end: 20100128
  50. METOCLOPRAMIDE HYDROCHLORIDE [Concomitant]
     Indication: PAIN PROPHYLAXIS
     Dosage: 40 MG
     Route: 042
     Dates: start: 20100126, end: 20100129
  51. SOMNOBENE [Concomitant]
     Indication: PROPHYLAXIS
     Dosage: 1 MG
     Route: 048
     Dates: start: 20100208, end: 20100210
  52. SIMVASTATIN [Concomitant]
     Dosage: 40 MG
     Route: 048
     Dates: start: 20100409
  53. FRAGMIN [Concomitant]
     Indication: THROMBOSIS PROPHYLAXIS
     Dosage: 5000 IE
     Route: 058
     Dates: start: 20100323, end: 20100329
  54. FRAGMIN [Concomitant]
     Dosage: 2500 IE
     Route: 058
     Dates: start: 20100406, end: 20100425
  55. DIBONDRIN [Concomitant]
     Indication: HYPERSENSITIVITY
     Dosage: 1 AMPOULE
     Route: 058
     Dates: start: 20100322, end: 20100322
  56. ACETAMINOPHEN [Concomitant]
     Dosage: 1 G
     Route: 042
     Dates: start: 20100426, end: 20100426
  57. NORVASC [Concomitant]
     Indication: HYPERTENSION
     Dosage: 10 MG
     Route: 048
     Dates: start: 20100413, end: 20100413
  58. NORVASC [Concomitant]
     Dosage: 5 MG
     Route: 048
     Dates: start: 20100423, end: 20100423
  59. AVELOX [Concomitant]
     Indication: INFECTION PROPHYLAXIS
     Dosage: 200 MG
     Route: 048
     Dates: start: 20100415, end: 20100504
  60. PRADAXA [Suspect]
     Dosage: 150 MG
     Route: 048
     Dates: start: 20100127, end: 20100309
  61. TRAMADOL HYDROCHLORIDE [Concomitant]
     Dosage: 100 MG
     Route: 048
     Dates: start: 20100426, end: 20100426
  62. NOVALGIN [Concomitant]
     Indication: PAIN
     Dosage: 4 G
     Route: 042
     Dates: start: 20100126, end: 20100129
  63. NOVALGIN [Concomitant]
     Dosage: 60 DROPS
     Route: 048
     Dates: start: 20100322, end: 20100412
  64. NOVALGIN [Concomitant]
     Dosage: 1 G
     Route: 048
     Dates: start: 20100417, end: 20100417
  65. VOLUVEN [Concomitant]
     Indication: INFUSION
     Dosage: 1000 ML
     Route: 042
     Dates: start: 20100126, end: 20100126
  66. DIPRIVAN [Concomitant]
     Indication: ANAESTHESIA
     Dosage: 250 MG
     Route: 042
     Dates: start: 20100126, end: 20100126
  67. LACTATED RINGER'S [Concomitant]
     Indication: INFUSION
     Dosage: 1000 ML
     Route: 042
     Dates: start: 20100126, end: 20100127
  68. LASIX [Concomitant]
     Dosage: 40 MG
     Route: 048
     Dates: start: 20100403
  69. ACETAMINOPHEN [Concomitant]
     Indication: PAIN
     Dosage: 1 G
     Route: 042
     Dates: start: 20100402, end: 20100402
  70. ROCEPHIN [Concomitant]
     Indication: INFECTION PROPHYLAXIS
     Dosage: 2 G
     Route: 042
     Dates: start: 20100403, end: 20100412
  71. SCOPOLAMINE [Concomitant]
     Indication: ABDOMINAL PAIN
     Dosage: 1 AMPOULE
     Route: 042
     Dates: start: 20100423, end: 20100423
  72. JANUWA [Concomitant]
     Indication: DIABETES MELLITUS
     Dosage: 50 MG
     Route: 048
     Dates: start: 20100403, end: 20100405

REACTIONS (11)
  - RASH [None]
  - HEPATIC ENZYME INCREASED [None]
  - PRURITUS [None]
  - PANCREATITIS [None]
  - BODY TEMPERATURE INCREASED [None]
  - VASCULAR PSEUDOANEURYSM [None]
  - ABDOMINAL PAIN UPPER [None]
  - FALL [None]
  - HEPATIC STEATOSIS [None]
  - POST PROCEDURAL HAEMATOMA [None]
  - JAUNDICE [None]
